FAERS Safety Report 5151307-4 (Version None)
Quarter: 2006Q4

REPORT INFORMATION
  Report Type: 
  Country: None (occurrence: None)
  Receive Date: 20061115
  Receipt Date: 20061113
  Transmission Date: 20070319
  Serious: Yes (Death)
  Sender: FDA-Public Use
  Company Number: US-GLAXOSMITHKLINE-A0627282A

PATIENT
  Age: 19 Year
  Sex: Male

DRUGS (3)
  1. LAMICTAL [Suspect]
     Indication: BIPOLAR DISORDER
     Dosage: 50MG PER DAY
     Route: 048
     Dates: start: 20061001
  2. METHADONE HCL [Suspect]
     Indication: DRUG WITHDRAWAL SYNDROME
     Dates: start: 20061104
  3. ALCOHOL [Concomitant]

REACTIONS (2)
  - DEATH [None]
  - DRUG INTERACTION [None]
